FAERS Safety Report 5692925-4 (Version None)
Quarter: 2008Q2

REPORT INFORMATION
  Report Type: 
  Country: None (occurrence: None)
  Receive Date: 20080325
  Receipt Date: 20071218
  Transmission Date: 20081010
  Serious: Yes (Disabling)
  Sender: FDA-Public Use
  Company Number: 13979505

PATIENT
  Sex: Female

DRUGS (2)
  1. EMSAM [Suspect]
     Indication: MAJOR DEPRESSION
     Dosage: 9 MILLIGRAM,1 DAY TD
     Dates: start: 20070510, end: 20071004
  2. DIAZEPAM [Concomitant]

REACTIONS (6)
  - BALANCE DISORDER [None]
  - GENERALISED OEDEMA [None]
  - NAUSEA [None]
  - SENSATION OF FOREIGN BODY [None]
  - THROAT TIGHTNESS [None]
  - VERTIGO [None]
